FAERS Safety Report 8866070 (Version 1)
Quarter: 2012Q4

REPORT INFORMATION
  Report Type: 
  Country: ES (occurrence: ES)
  Receive Date: 20121025
  Receipt Date: 20121025
  Transmission Date: 20130627
  Serious: Yes (Hospitalization, Other)
  Sender: FDA-Public Use
  Company Number: ES-PFIZER INC-2012244577

PATIENT
  Age: 82 Year
  Sex: Female

DRUGS (5)
  1. ZARATOR [Suspect]
     Dosage: 10 mg, UNK
     Route: 048
     Dates: start: 20090310
  2. OMEPRAZOLE [Suspect]
     Dosage: UNK
     Route: 048
     Dates: start: 20120403
  3. ADIRO [Suspect]
     Dosage: 100 mg, UNK
     Route: 048
     Dates: start: 20070504
  4. AUGMENTINE [Suspect]
     Indication: NASOPHARYNGITIS
     Dosage: 500 mg, 3x/day
     Route: 048
     Dates: start: 20120507, end: 20120514
  5. EMCONCOR COR [Suspect]
     Dosage: 2.5 mg, UNK
     Route: 048
     Dates: start: 20091204

REACTIONS (15)
  - Hepatitis [Recovered/Resolved]
  - Cholestasis [Unknown]
  - Renal cyst [Unknown]
  - Jaundice [Recovered/Resolved]
  - Gamma-glutamyltransferase increased [Recovering/Resolving]
  - Aspartate aminotransferase increased [Recovered/Resolved]
  - Alanine aminotransferase increased [Recovered/Resolved]
  - Blood alkaline phosphatase increased [Recovering/Resolving]
  - Blood bilirubin increased [Unknown]
  - Asteatosis [Unknown]
  - Skin erosion [Recovered/Resolved]
  - Choluria [Recovered/Resolved]
  - Faeces pale [Recovered/Resolved]
  - Fatigue [Recovered/Resolved]
  - Pruritus generalised [Recovered/Resolved]
